FAERS Safety Report 15426451 (Version 1)
Quarter: 2018Q3

REPORT INFORMATION
  Report Type: Spontaneous
  Country: IT (occurrence: IT)
  Receive Date: 20180925
  Receipt Date: 20180925
  Transmission Date: 20181010
  Serious: Yes (Hospitalization)
  Sender: FDA-Public Use
  Company Number: IT-PFIZER INC-2018380176

PATIENT
  Age: 78 Year
  Sex: Male

DRUGS (1)
  1. SUNITINIB MALATE. [Suspect]
     Active Substance: SUNITINIB MALATE
     Indication: RENAL CANCER STAGE IV
     Dosage: 50 MG, CYCLIC
     Route: 048
     Dates: start: 20180525, end: 20180619

REACTIONS (2)
  - Intestinal perforation [Recovered/Resolved with Sequelae]
  - Acute abdomen [Recovered/Resolved with Sequelae]

NARRATIVE: CASE EVENT DATE: 20180619
